FAERS Safety Report 7690489-7 (Version None)
Quarter: 2011Q3

REPORT INFORMATION
  Report Type: 
  Country: None (occurrence: None)
  Receive Date: 20110818
  Receipt Date: 20110816
  Transmission Date: 20111222
  Serious: Yes (Other)
  Sender: FDA-Public Use
  Company Number: AU-PFIZER INC-2011188645

PATIENT
  Age: 27 Year
  Sex: Male

DRUGS (3)
  1. VARENICLINE TARTRATE [Suspect]
     Indication: SMOKING CESSATION THERAPY
     Dosage: 1 MG, 2X/DAY
     Route: 048
  2. SEROQUEL [Concomitant]
     Indication: SCHIZOPHRENIA
     Dosage: UNK
  3. NICOTINE [Concomitant]
     Dosage: UNK

REACTIONS (1)
  - SCHIZOPHRENIA [None]
